FAERS Safety Report 5745152-6 (Version None)
Quarter: 2008Q2

REPORT INFORMATION
  Report Type: 
  Country: None (occurrence: None)
  Receive Date: 20080521
  Receipt Date: 20080515
  Transmission Date: 20081010
  Serious: Yes (Other)
  Sender: FDA-Public Use
  Company Number: PHHY2008US08075

PATIENT
  Sex: Male

DRUGS (4)
  1. BACLOFEN [Suspect]
     Dosage: SEVERAL TIMES A DAY
     Route: 048
  2. OXYBUTYNIN CHLORIDE [Concomitant]
  3. LIORESAL [Suspect]
     Indication: MUSCLE SPASTICITY
     Dosage: 580 MCG DAILY
     Route: 037
  4. LIORESAL [Suspect]
     Dosage: 177 MCG AT 2400, 155 MCG AT 9:00
     Route: 037

REACTIONS (5)
  - DYSKINESIA [None]
  - INFECTION [None]
  - MUSCLE SPASMS [None]
  - MUSCLE TIGHTNESS [None]
  - MUSCLE TWITCHING [None]
